FAERS Safety Report 5216915-0 (Version None)
Quarter: 2007Q1

REPORT INFORMATION
  Report Type: 
  Country: None (occurrence: None)
  Receive Date: 20070124
  Receipt Date: 20070115
  Transmission Date: 20070707
  Serious: Yes (Hospitalization)
  Sender: FDA-Public Use
  Company Number: PHRM2007FR00548

PATIENT
  Age: 53 Year
  Sex: Female
  Weight: 75 kg

DRUGS (5)
  1. VALSARTAN AND HYDROCHLOROTHIAZIDE [Suspect]
     Indication: HYPERTENSION
     Dosage: 1 DF, QD
     Route: 048
  2. CRESTOR [Suspect]
     Dosage: 10 MG, QD
     Route: 048
  3. ALDACTAZINE [Suspect]
     Dosage: 1 DF, QD
     Route: 048
  4. AVLOCARDYL [Suspect]
     Dosage: 40 MG, QD
     Route: 048
  5. AMLOR [Suspect]
     Dosage: 5 MG, QD
     Route: 048

REACTIONS (2)
  - BLOOD PRESSURE INADEQUATELY CONTROLLED [None]
  - PULMONARY EMBOLISM [None]
